FAERS Safety Report 6251479-4 (Version None)
Quarter: 2009Q2

REPORT INFORMATION
  Report Type: 
  Country: None (occurrence: None)
  Receive Date: 20090630
  Receipt Date: 20090622
  Transmission Date: 20091009
  Serious: Yes (Other)
  Sender: FDA-Public Use
  Company Number: US-JNJFOC-20090601138

PATIENT
  Sex: Male

DRUGS (6)
  1. TOPAMAX [Suspect]
     Indication: WEIGHT LOSS DIET
     Route: 048
  2. PHENTERMINE [Suspect]
     Indication: WEIGHT LOSS DIET
     Dosage: HALF TABLET EVERY MORNING
  3. INDOMETHACIN [Concomitant]
     Indication: PAIN
     Route: 048
  4. LORTAB [Concomitant]
     Indication: PAIN
     Dosage: EVERY 4-6 HOURS AS NEEDED.
     Route: 048
  5. TEMAZEPAM [Concomitant]
     Indication: SLEEP DISORDER THERAPY
     Dosage: ONE AT BEDTIME
     Route: 048
  6. ATENOLOL [Concomitant]
     Indication: BLOOD PRESSURE
     Dosage: EVERY DAY
     Route: 048

REACTIONS (3)
  - FEELING ABNORMAL [None]
  - LOSS OF CONSCIOUSNESS [None]
  - MEMORY IMPAIRMENT [None]
